FAERS Safety Report 5837624-0 (Version None)
Quarter: 2008Q3

REPORT INFORMATION
  Report Type: 
  Country: None (occurrence: None)
  Receive Date: 20080807
  Receipt Date: 20080730
  Transmission Date: 20090109
  Serious: Yes (Hospitalization, Other)
  Sender: FDA-Public Use
  Company Number: US-PFIZER INC-2008064010

PATIENT
  Sex: Female
  Weight: 57.2 kg

DRUGS (13)
  1. GEODON [Suspect]
     Indication: HALLUCINATION
  2. ACETYLSALICYLIC ACID SRT [Concomitant]
  3. CENTRUM [Concomitant]
  4. ATENOLOL [Concomitant]
  5. VASOTEC [Concomitant]
  6. PLAVIX [Concomitant]
  7. SYNTHROID [Concomitant]
  8. KEPPRA [Concomitant]
  9. TEMAZEPAM [Concomitant]
  10. AMITRIPTYLINE HCL [Concomitant]
  11. ZOCOR [Concomitant]
  12. XANAX [Concomitant]
  13. PRILOSEC [Concomitant]

REACTIONS (3)
  - CEREBROVASCULAR ACCIDENT [None]
  - LIMB DISCOMFORT [None]
  - LIP DISORDER [None]
